FAERS Safety Report 5836980-7 (Version None)
Quarter: 2008Q3

REPORT INFORMATION
  Report Type: 
  Country: None (occurrence: None)
  Receive Date: 20080807
  Receipt Date: 20080801
  Transmission Date: 20090109
  Serious: Yes (Other)
  Sender: FDA-Public Use
  Company Number: KR-JNJFOC-20080800158

PATIENT
  Age: 45 Year
  Sex: Female

DRUGS (2)
  1. DURAGESIC-100 [Suspect]
     Indication: PAIN
     Route: 062
  2. ULTRACET [Suspect]
     Indication: DRUG USE FOR UNKNOWN INDICATION
     Dosage: 162.5 / 18.75 MG TABLETS
     Route: 048

REACTIONS (1)
  - PLEURAL EFFUSION [None]
